FAERS Safety Report 12176687 (Version 1)
Quarter: 2016Q1

REPORT INFORMATION
  Report Type: Spontaneous
  Country: US (occurrence: US)
  Receive Date: 20160314
  Receipt Date: 20160314
  Transmission Date: 20160526
  Serious: No
  Sender: FDA-Public Use
  Company Number: US-AKORN PHARMACEUTICALS-2015AKN00518

PATIENT
  Age: 35 Year
  Sex: Female
  Weight: 61.7 kg

DRUGS (6)
  1. MYORISAN [Suspect]
     Active Substance: ISOTRETINOIN
     Indication: ACNE
     Dosage: 80 MG, 1X/DAY
     Dates: start: 20150303, end: 20150910
  2. TIZANIDINE. [Concomitant]
     Active Substance: TIZANIDINE
  3. TRAMADOL. [Concomitant]
     Active Substance: TRAMADOL
  4. BIOTIN [Concomitant]
     Active Substance: BIOTIN
  5. VITAMIN B12 [Concomitant]
     Active Substance: CYANOCOBALAMIN
  6. MULTIVITAMIN [Concomitant]
     Active Substance: VITAMINS

REACTIONS (1)
  - Headache [Recovered/Resolved]

NARRATIVE: CASE EVENT DATE: 201508
